FAERS Safety Report 5571041-6 (Version None)
Quarter: 2007Q4

REPORT INFORMATION
  Report Type: 
  Country: None (occurrence: None)
  Receive Date: 20071221
  Receipt Date: 20071029
  Transmission Date: 20080405
  Serious: Yes (Hospitalization, Other)
  Sender: FDA-Public Use
  Company Number: US-PURDUE-USA_2007_0030228

PATIENT

DRUGS (7)
  1. VALIUM [Concomitant]
     Dosage: 10 MG, UNK
  2. AMBIEN [Concomitant]
     Dosage: 10 MG, UNK
  3. DESYREL [Concomitant]
     Dosage: 150 MG, UNK
  4. PROZAC [Concomitant]
     Dosage: 20 MG, UNK
  5. WELLBUTRIN [Concomitant]
     Dosage: 150 MG, UNK
  6. ALCOHOL [Suspect]
     Indication: ALCOHOL ABUSE
  7. OXYCONTIN [Suspect]
     Indication: BACK PAIN
     Dates: start: 19991001, end: 20010615

REACTIONS (11)
  - AMNESIA [None]
  - ANHEDONIA [None]
  - DRUG DEPENDENCE [None]
  - EUPHORIC MOOD [None]
  - HYPOAESTHESIA [None]
  - MENTAL IMPAIRMENT [None]
  - SOCIAL AVOIDANT BEHAVIOUR [None]
  - SPLENECTOMY [None]
  - SUBSTANCE ABUSE [None]
  - SUICIDE ATTEMPT [None]
  - TREMOR [None]
